FAERS Safety Report 6031361-8 (Version None)
Quarter: 2008Q4

REPORT INFORMATION
  Report Type: 
  Country: None (occurrence: None)
  Receive Date: 20081224
  Receipt Date: 20080929
  Transmission Date: 20090506
  Serious: Yes (Death, Hospitalization)
  Sender: FDA-Public Use
  Company Number: US-CVT-080032

PATIENT
  Age: 82 Year
  Sex: Male
  Weight: 70.3 kg

DRUGS (10)
  1. RANEXA [Suspect]
     Indication: CHEST PAIN
     Dosage: 500 MG, BID, ORAL
     Route: 048
     Dates: start: 20070314, end: 20070316
  2. RANEXA [Suspect]
     Indication: LEFT VENTRICULAR HYPERTROPHY
     Dosage: 500 MG, BID, ORAL
     Route: 048
     Dates: start: 20070314, end: 20070316
  3. ASPIRIN /00002701/ (ACETYLSALICYLCIC ACID) [Concomitant]
  4. GLYBURIDE [Concomitant]
  5. ZOCOR [Concomitant]
  6. LOPRESSOR (METOPROLOL TARTRATE) [Concomitant]
  7. NEXIUM [Concomitant]
  8. PERI-COLACE [Concomitant]
  9. LOVENOX /00889602/ (HEPARIN-FRACTION, SODIUM SALT) [Concomitant]
  10. TERAZOSIN HCL [Concomitant]

REACTIONS (3)
  - CARDIOPULMONARY FAILURE [None]
  - LOSS OF CONSCIOUSNESS [None]
  - SYNCOPE [None]
